FAERS Safety Report 6111078-1 (Version None)
Quarter: 2009Q1

REPORT INFORMATION
  Report Type: 
  Country: None (occurrence: None)
  Receive Date: 20090306
  Receipt Date: 20090306
  Transmission Date: 20090719
  Serious: Yes (Hospitalization)
  Sender: FDA-Public Use
  Company Number: None

PATIENT
  Age: 59 Year
  Sex: Male
  Weight: 122.8 kg

DRUGS (3)
  1. LISINOPRIL [Suspect]
     Indication: HYPERTENSION
     Dosage: 40 EVERY DAY PO
     Route: 048
     Dates: start: 19980210, end: 20090204
  2. LISINOPRIL [Suspect]
     Indication: PAIN
     Dosage: 40 EVERY DAY PO
     Route: 048
     Dates: start: 19980210, end: 20090204
  3. DICLOFENAC [Suspect]
     Dosage: 100 MG BID PO
     Route: 048
     Dates: start: 20071105, end: 20090205

REACTIONS (1)
  - ANGIOEDEMA [None]
